FAERS Safety Report 6058798-5 (Version None)
Quarter: 2009Q1

REPORT INFORMATION
  Report Type: 
  Country: None (occurrence: None)
  Receive Date: 20090128
  Receipt Date: 20090128
  Transmission Date: 20090719
  Serious: Yes (Hospitalization)
  Sender: FDA-Public Use
  Company Number: None

PATIENT
  Sex: Female
  Weight: 58.63 kg

DRUGS (4)
  1. CISPLATIN [Suspect]
     Dosage: 160 MG
     Dates: end: 20080617
  2. PERCOCET [Concomitant]
  3. XANAX [Concomitant]
  4. OXYCONTIN [Concomitant]

REACTIONS (7)
  - CONSTIPATION [None]
  - COUGH [None]
  - DRUG ABUSE [None]
  - DYSPHAGIA [None]
  - LETHARGY [None]
  - NAUSEA [None]
  - VOMITING [None]
